FAERS Safety Report 7105592-X (Version None)
Quarter: 2010Q4

REPORT INFORMATION
  Report Type: 
  Country: None (occurrence: None)
  Receive Date: 20101116
  Receipt Date: 20101111
  Transmission Date: 20110411
  Serious: Yes (Disabling)
  Sender: FDA-Public Use
  Company Number: BR-ROCHE-741189

PATIENT
  Sex: Female
  Weight: 86 kg

DRUGS (1)
  1. RIVOTRIL [Suspect]
     Indication: BIPOLAR DISORDER
     Dosage: HALF TAB WITH BREAKFAST, HALF TAB WITH LUNCH AND 1 TAB AT NIGHT
     Route: 065
     Dates: start: 19950101

REACTIONS (4)
  - DEAFNESS [None]
  - EAR INFECTION [None]
  - EAR PAIN [None]
  - PHARYNGITIS [None]
